FAERS Safety Report 8809456 (Version 1)
Quarter: 2012Q4

REPORT INFORMATION
  Report Type: 
  Country: US (occurrence: US)
  Receive Date: 20120926
  Receipt Date: 20120926
  Transmission Date: 20130627
  Serious: No
  Sender: FDA-Public Use
  Company Number: US-ASTRAZENECA-2012SE71949

PATIENT
  Age: 54 Year
  Sex: Male
  Weight: 90.7 kg

DRUGS (10)
  1. LISINOPRIL [Suspect]
     Indication: BLOOD PRESSURE ABNORMAL
     Route: 048
     Dates: start: 2006
  2. SEROQUEL XR [Suspect]
     Indication: BIPOLAR I DISORDER
     Route: 048
     Dates: start: 2009, end: 201209
  3. SEROQUEL XR [Suspect]
     Indication: BIPOLAR I DISORDER
     Route: 048
     Dates: start: 201209, end: 201209
  4. METFORMIN [Concomitant]
     Indication: DIABETES MELLITUS
     Route: 048
  5. LANTUS [Concomitant]
     Indication: DIABETES MELLITUS
     Dosage: 20 UNITS, AT NIGHT
     Route: 048
     Dates: start: 2011
  6. COREG [Concomitant]
     Indication: CARDIAC DISORDER
     Route: 048
     Dates: start: 2006
  7. PLAVIX [Concomitant]
     Indication: STENT PLACEMENT
     Route: 048
     Dates: start: 201204
  8. LEVOTHYROXINE [Concomitant]
     Indication: HYPOTHYROIDISM
     Route: 048
     Dates: start: 2011
  9. WELLBUTRIN [Concomitant]
     Indication: DEPRESSION
     Dosage: ONCE
     Route: 048
     Dates: start: 2007
  10. ZOLOFT [Concomitant]
     Indication: DEPRESSION
     Dosage: BID
     Route: 048
     Dates: start: 2007

REACTIONS (6)
  - Diabetes mellitus [Unknown]
  - Hypothyroidism [Unknown]
  - Feeling abnormal [Unknown]
  - Depression [Unknown]
  - Confusional state [Unknown]
  - Drug dose omission [Unknown]
